FAERS Safety Report 14203251 (Version 1)
Quarter: 2017Q4

REPORT INFORMATION
  Report Type: Report from Study
  Country: None (occurrence: DE)
  Receive Date: 20171120
  Receipt Date: 20171120
  Transmission Date: 20180321
  Serious: Yes (Hospitalization)
  Sender: FDA-Public Use
  Company Number: DE-ABBVIE-17K-062-2167394-00

PATIENT
  Age: 75 Year
  Sex: Male

DRUGS (9)
  1. METFORMIN [Concomitant]
     Active Substance: METFORMIN HYDROCHLORIDE
     Indication: PRODUCT USED FOR UNKNOWN INDICATION
  2. MIRTAZAPIN [Concomitant]
     Active Substance: MIRTAZAPINE
     Indication: PRODUCT USED FOR UNKNOWN INDICATION
  3. DUODOPA [Suspect]
     Active Substance: CARBIDOPA\LEVODOPA
     Indication: PARKINSON^S DISEASE
     Dosage: MD.0 ML, CRD 3.1 ML/H, ED 1.5 ML
     Route: 050
     Dates: start: 20170712, end: 2017
  4. MONO EMBOLEX [Concomitant]
     Active Substance: CERTOPARIN SODIUM
     Indication: PRODUCT USED FOR UNKNOWN INDICATION
  5. NEUPRO PLASTER [Concomitant]
     Indication: PRODUCT USED FOR UNKNOWN INDICATION
     Route: 062
  6. MOVICOL [Concomitant]
     Active Substance: POLYETHYLENE GLYCOL 3350\POTASSIUM CHLORIDE\SODIUM BICARBONATE\SODIUM CHLORIDE
     Indication: PRODUCT USED FOR UNKNOWN INDICATION
  7. DUODOPA [Suspect]
     Active Substance: CARBIDOPA\LEVODOPA
     Dosage: MD.0 ML, CRD 3.3 ML/H, ED 1.5 ML
     Route: 050
     Dates: start: 2017
  8. LANTUS [Concomitant]
     Active Substance: INSULIN GLARGINE
     Indication: PRODUCT USED FOR UNKNOWN INDICATION
  9. MADOPAR DEPOT [Concomitant]
     Active Substance: BENSERAZIDE HYDROCHLORIDE\LEVODOPA
     Indication: PRODUCT USED FOR UNKNOWN INDICATION

REACTIONS (1)
  - Lower limb fracture [Recovering/Resolving]

NARRATIVE: CASE EVENT DATE: 201709
